FAERS Safety Report 5136315-1 (Version None)
Quarter: 2006Q4

REPORT INFORMATION
  Report Type: 
  Country: None (occurrence: None)
  Receive Date: 20061027
  Receipt Date: 20061023
  Transmission Date: 20070319
  Serious: Yes (Other)
  Sender: FDA-Public Use
  Company Number: JP-JPN-A200604485

PATIENT
  Age: 23 Year
  Sex: Female

DRUGS (2)
  1. PAXIL [Suspect]
     Route: 048
  2. DEPAS [Concomitant]
     Route: 048

REACTIONS (4)
  - DYSKINESIA [None]
  - FEELING ABNORMAL [None]
  - INTENTIONAL OVERDOSE [None]
  - TACHYCARDIA [None]
